FAERS Safety Report 8462216-7 (Version None)
Quarter: 2012Q2

REPORT INFORMATION
  Report Type: 
  Country: None (occurrence: None)
  Receive Date: 20120625
  Receipt Date: 20120620
  Transmission Date: 20120825
  Serious: Yes (Other)
  Sender: FDA-Public Use
  Company Number: PHEH2012US011209

PATIENT
  Sex: Male

DRUGS (1)
  1. GILENYA [Suspect]
     Indication: MULTIPLE SCLEROSIS
     Dosage: 0.5 MG, QD
     Route: 048
     Dates: start: 20120531, end: 20120614

REACTIONS (4)
  - CHEST DISCOMFORT [None]
  - MULTIPLE SCLEROSIS RELAPSE [None]
  - CENTRAL NERVOUS SYSTEM LESION [None]
  - FATIGUE [None]
